FAERS Safety Report 5386250-9 (Version None)
Quarter: 2007Q3

REPORT INFORMATION
  Report Type: 
  Country: None (occurrence: None)
  Receive Date: 20070710
  Receipt Date: 20070710
  Transmission Date: 20080115
  Serious: Yes (Other)
  Sender: FDA-Public Use
  Company Number: None

PATIENT
  Age: 77 Year
  Sex: Female

DRUGS (6)
  1. REVLIMID [Suspect]
     Indication: MULTIPLE MYELOMA
     Dosage: 5MG DAILY FOR 28 DAYS PO
     Route: 048
     Dates: start: 20070612, end: 20070706
  2. VELCADE [Concomitant]
  3. PREDNISONE [Concomitant]
  4. DECADRON [Concomitant]
  5. SEPTRA [Concomitant]
  6. LORAZEPAM [Concomitant]

REACTIONS (3)
  - OEDEMA PERIPHERAL [None]
  - RASH [None]
  - URTICARIA [None]
